FAERS Safety Report 5618951-9 (Version None)
Quarter: 2008Q1

REPORT INFORMATION
  Report Type: 
  Country: None (occurrence: None)
  Receive Date: 20080114
  Receipt Date: 20071101
  Transmission Date: 20080703
  Serious: Yes (Other)
  Sender: FDA-Public Use
  Company Number: 2007092726

PATIENT
  Age: 30 Year
  Sex: Female
  Weight: 58.1 kg

DRUGS (1)
  1. DEPO-SUBQ PROVERA 104 [Suspect]
     Indication: CONTRACEPTION
     Dosage: 104 MG (104 MG,1ST INJECTION EVERY 12 -14 WEEKS),SUBCUTANEOUS
     Route: 058
     Dates: start: 20051228, end: 20051228

REACTIONS (2)
  - INJECTION SITE INDURATION [None]
  - INJECTION SITE REACTION [None]
